FAERS Safety Report 7609965-8 (Version None)
Quarter: 2011Q3

REPORT INFORMATION
  Report Type: 
  Country: None (occurrence: None)
  Receive Date: 20110714
  Receipt Date: 20110705
  Transmission Date: 20111222
  Serious: Yes (Hospitalization)
  Sender: FDA-Public Use
  Company Number: FR-GILEAD-E2B_00001181

PATIENT
  Sex: Male
  Weight: 108 kg

DRUGS (8)
  1. LISINOPRIL [Concomitant]
  2. SIMVASTATIN [Concomitant]
  3. SPIRONOLACTONE [Concomitant]
  4. AMBRISENTAN [Suspect]
     Indication: PULMONARY ARTERIAL HYPERTENSION
     Dosage: 5MG PER DAY
     Route: 048
     Dates: start: 20110323
  5. TADALAFIL [Suspect]
     Indication: PULMONARY ARTERIAL HYPERTENSION
     Dosage: 20MG PER DAY
     Route: 048
     Dates: start: 20110323
  6. METFORMIN HCL [Concomitant]
  7. FLUORINDIONE [Concomitant]
  8. GLIBENCEMIDE [Concomitant]

REACTIONS (4)
  - CARDIAC FAILURE [None]
  - ACUTE RESPIRATORY FAILURE [None]
  - ARRHYTHMIA [None]
  - SEPSIS [None]
